FAERS Safety Report 25967841 (Version 1)
Quarter: 2025Q4

REPORT INFORMATION
  Report Type: Spontaneous
  Country: US (occurrence: US)
  Receive Date: 20251028
  Receipt Date: 20251028
  Transmission Date: 20260118
  Serious: Yes (Hospitalization, Other)
  Sender: TEVA
  Company Number: US-TEVA-VS-3384640

PATIENT
  Age: 60 Year
  Sex: Female

DRUGS (1)
  1. AUSTEDO XR [Suspect]
     Active Substance: DEUTETRABENAZINE
     Indication: Dyskinesia
     Route: 065

REACTIONS (4)
  - Tachycardia [Unknown]
  - Heart valve incompetence [Unknown]
  - Blood glucose decreased [Unknown]
  - Stress [Unknown]
